FAERS Safety Report 22748631 (Version 5)
Quarter: 2023Q4

REPORT INFORMATION
  Report Type: Spontaneous
  Country: US (occurrence: US)
  Receive Date: 20230725
  Receipt Date: 20231227
  Transmission Date: 20240110
  Serious: Yes (Hospitalization)
  Sender: FDA-Public Use
  Company Number: US-XERIS PHARMACEUTICALS-2023XER01982

PATIENT
  Sex: Female

DRUGS (3)
  1. RECORLEV [Suspect]
     Active Substance: LEVOKETOCONAZOLE
     Indication: Cushing^s syndrome
     Dosage: 1 TABLET (150 MG), 2X/DAY
     Dates: start: 20230628, end: 20230923
  2. RECORLEV [Suspect]
     Active Substance: LEVOKETOCONAZOLE
     Dosage: 2 TABLETS (300 MG), 2X/DAY
     Route: 048
     Dates: start: 20230924, end: 20231025
  3. RECORLEV [Suspect]
     Active Substance: LEVOKETOCONAZOLE
     Dosage: 2 TABLETS (300 MG), 3X/DAY
     Route: 048
     Dates: start: 20231026

REACTIONS (11)
  - Cystitis [Unknown]
  - Constipation [Recovering/Resolving]
  - Respiratory tract infection [Recovering/Resolving]
  - Muscle spasms [Unknown]
  - Solar lentigo [Not Recovered/Not Resolved]
  - Chloasma [Not Recovered/Not Resolved]
  - Weight decreased [Not Recovered/Not Resolved]
  - Herpes zoster [Not Recovered/Not Resolved]
  - Skin ulcer [Not Recovered/Not Resolved]
  - Headache [Recovered/Resolved]
  - Nausea [Recovering/Resolving]

NARRATIVE: CASE EVENT DATE: 20230101
